FAERS Safety Report 16123546 (Version 2)
Quarter: 2019Q2

REPORT INFORMATION
  Report Type: Report from Study
  Country: US (occurrence: US)
  Receive Date: 20190327
  Receipt Date: 20190424
  Transmission Date: 20190711
  Serious: Yes (Hospitalization, Other)
  Sender: FDA-Public Use
  Company Number: US-GILEAD-2019-0399020

PATIENT
  Age: 42 Year
  Sex: Female

DRUGS (14)
  1. LEVOTHYROXIN [Concomitant]
     Active Substance: LEVOTHYROXINE
  2. METHYLPRED [Concomitant]
     Active Substance: METHYLPREDNISOLONE
  3. AMBRISENTAN [Suspect]
     Active Substance: AMBRISENTAN
     Indication: PULMONARY ARTERIAL HYPERTENSION
     Dosage: 5 MG, QD
     Route: 065
     Dates: start: 20190226
  4. POLYMYXIN [Concomitant]
     Active Substance: POLYMYXIN
  5. PANTOPRAZOLE [Concomitant]
     Active Substance: PANTOPRAZOLE
  6. SILDENAFIL. [Concomitant]
     Active Substance: SILDENAFIL
  7. AMOXI-CLAV [Concomitant]
     Active Substance: AMOXICILLIN\CLAVULANATE POTASSIUM
  8. TRAMADOL HCL [Concomitant]
     Active Substance: TRAMADOL HYDROCHLORIDE
  9. POTASSIUM CHLORIDE. [Concomitant]
     Active Substance: POTASSIUM CHLORIDE
  10. ULORIC [Concomitant]
     Active Substance: FEBUXOSTAT
  11. DIGOX [DIGOXIN] [Concomitant]
  12. TORSEMIDE. [Concomitant]
     Active Substance: TORSEMIDE
  13. METOLAZONE. [Concomitant]
     Active Substance: METOLAZONE
  14. SPIRONOLACTONE. [Concomitant]
     Active Substance: SPIRONOLACTONE

REACTIONS (2)
  - Renal disorder [Not Recovered/Not Resolved]
  - Gastrointestinal haemorrhage [Not Recovered/Not Resolved]

NARRATIVE: CASE EVENT DATE: 20190312
